FAERS Safety Report 6786430-1 (Version None)
Quarter: 2010Q2

REPORT INFORMATION
  Report Type: 
  Country: None (occurrence: None)
  Receive Date: 20100623
  Receipt Date: 20100616
  Transmission Date: 20101027
  Serious: Yes (Hospitalization)
  Sender: FDA-Public Use
  Company Number: A0866413A

PATIENT
  Age: 52 Year
  Sex: Female

DRUGS (1)
  1. AVANDAMET [Suspect]
     Dosage: 1TAB PER DAY
     Dates: start: 20050104, end: 20050101

REACTIONS (1)
  - CORONARY ARTERY DISEASE [None]
